FAERS Safety Report 13800348 (Version 6)
Quarter: 2018Q1

REPORT INFORMATION
  Report Type: Report from Study
  Country: FR (occurrence: FR)
  Receive Date: 20170727
  Receipt Date: 20180122
  Transmission Date: 20180508
  Serious: Yes (Other)
  Sender: FDA-Public Use
  Company Number: FR-ROCHE-1965007

PATIENT
  Age: 53 Year
  Sex: Female
  Weight: 69.4 kg

DRUGS (29)
  1. ACTISKENAN [Concomitant]
     Active Substance: MORPHINE SULFATE
     Indication: BACK PAIN
     Route: 065
     Dates: start: 20170106, end: 201701
  2. CODEINE PHOSPHATE [Concomitant]
     Active Substance: CODEINE PHOSPHATE
     Indication: BACK PAIN
     Route: 048
     Dates: start: 20170303, end: 20170602
  3. OMEPRAZOLE. [Concomitant]
     Active Substance: OMEPRAZOLE
     Indication: BACK PAIN
     Dosage: FOR LUMBAGO
     Route: 048
     Dates: start: 20170523, end: 20170602
  4. METHYLPREDNISOLONE. [Concomitant]
     Active Substance: METHYLPREDNISOLONE
     Indication: PREMEDICATION
     Dosage: SUBSEQUENT DOSES RECEIVED ON 17/OCT/2011, 23/MAR/2012, 05/APR/2012, 04/SEP/2012, 19/SEP/2012, 05/MAR
     Route: 065
     Dates: start: 20111003
  5. PARACETAMOL [Concomitant]
     Active Substance: ACETAMINOPHEN
     Dosage: FOR BACK PAIN
     Route: 065
     Dates: start: 20161014, end: 20161103
  6. ACTISKENAN [Concomitant]
     Active Substance: MORPHINE SULFATE
     Indication: SPINAL FRACTURE
     Route: 065
     Dates: start: 20160812, end: 20161012
  7. PLACEBO [Suspect]
     Active Substance: UNSPECIFIED INGREDIENT
     Indication: PRIMARY PROGRESSIVE MULTIPLE SCLEROSIS
     Dosage: TWO INFUSIONS SEPARARTED BY 14 DAYS, EVERY 24 WEEKS CYCLE (FREQUENCY AS PER PROTOCOL)?SUBSEQUENT DOS
     Route: 042
     Dates: start: 20111003, end: 20160329
  8. PARACETAMOL [Concomitant]
     Active Substance: ACETAMINOPHEN
     Dosage: FOR THIGH PAIN
     Route: 065
     Dates: start: 20151123, end: 20161009
  9. SKENAN [Concomitant]
     Active Substance: MORPHINE SULFATE
     Indication: BACK PAIN
     Dosage: FOR BACK PAIN
     Route: 065
     Dates: start: 20170106, end: 201701
  10. SKENAN [Concomitant]
     Active Substance: MORPHINE SULFATE
     Dosage: FOR FRACTURE(SPLIT) OF THE VERTEBRA D12
     Route: 065
     Dates: start: 20161011, end: 20161011
  11. SKENAN [Concomitant]
     Active Substance: MORPHINE SULFATE
     Dosage: FOR BACK PAIN
     Route: 065
     Dates: start: 20161012, end: 20161012
  12. ASPEGIC [Concomitant]
     Active Substance: ASPIRIN DL-LYSINE
  13. PARACETAMOL [Concomitant]
     Active Substance: ACETAMINOPHEN
     Indication: PREMEDICATION
     Dosage: SUBSEQUENT DOSES RECEIVED ON 17/OCT/2011, 23/MAR/2012, 05/APR/2012, 04/SEP/2012, 19/SEP/2012, 05/MAR
     Route: 065
     Dates: start: 20111003
  14. SKENAN [Concomitant]
     Active Substance: MORPHINE SULFATE
     Indication: SPINAL FRACTURE
     Dosage: FOR FRACTURE(SPLIT) OF THE VERTEBRA D12
     Route: 065
     Dates: start: 20161010, end: 20161010
  15. PARACETAMOL [Concomitant]
     Active Substance: ACETAMINOPHEN
     Indication: SINUSITIS
     Dosage: FOR SINUSITIS
     Route: 065
     Dates: start: 20150106, end: 20150113
  16. PARACETAMOL [Concomitant]
     Active Substance: ACETAMINOPHEN
     Indication: VIRAL INFECTION
     Dosage: FOR VIRAL SYNDROME
     Route: 065
     Dates: start: 20120207, end: 20120212
  17. PARACETAMOL [Concomitant]
     Active Substance: ACETAMINOPHEN
     Dosage: 1 G AND 2 G FOR FRACTURE ( SPLIT) OF VERTEBRA B12
     Route: 065
     Dates: start: 20161011, end: 20161011
  18. KETOPROFENE [Concomitant]
     Active Substance: KETOPROFEN
     Indication: BACK PAIN
     Route: 065
     Dates: start: 20170523, end: 20170602
  19. OCRELIZUMAB. [Suspect]
     Active Substance: OCRELIZUMAB
     Indication: PRIMARY PROGRESSIVE MULTIPLE SCLEROSIS
     Dosage: TWO IV INFUSIONS OF OCRELIZUMAB 300 MG (DAY 1 AND DAY 15) FOR CYCLE 1 AND SINGLE IV INFUSION OF OCRE
     Route: 042
     Dates: start: 20160330
  20. ATARAX [Concomitant]
     Active Substance: HYDROXYZINE HYDROCHLORIDE
     Indication: PREMEDICATION
     Dosage: SUBSEQUENT DOSES RECEIVED ON 17/OCT/2011, 22/MAR/2012, 05/APR/2012, 04/SEP/2012, 05/MAR/2013, 13/APR
     Route: 065
     Dates: start: 20111003
  21. PARACETAMOL [Concomitant]
     Active Substance: ACETAMINOPHEN
     Indication: BACK PAIN
     Dosage: FOR LUMBAGO
     Route: 065
     Dates: start: 20120410, end: 20120411
  22. PARACETAMOL [Concomitant]
     Active Substance: ACETAMINOPHEN
     Indication: PAIN IN EXTREMITY
     Dosage: FOR FRACTURE ( SPLIT) OF VERTEBRA B12
     Route: 065
     Dates: start: 20161010, end: 20161010
  23. OMEPRAZOLE. [Concomitant]
     Active Substance: OMEPRAZOLE
     Dosage: FOR LUMBAGO
     Route: 065
     Dates: start: 20120410, end: 20120416
  24. OMEPRAZOLE. [Concomitant]
     Active Substance: OMEPRAZOLE
     Dosage: FOR GASTRALGIES
     Route: 065
     Dates: start: 20150107, end: 20150312
  25. PARACETAMOL [Concomitant]
     Active Substance: ACETAMINOPHEN
     Indication: BACK PAIN
     Dosage: FOR LUMBAGO
     Route: 065
     Dates: start: 20170303, end: 20170602
  26. PARACETAMOL [Concomitant]
     Active Substance: ACETAMINOPHEN
     Dosage: FOR BACK PAIN
     Route: 065
     Dates: start: 20161012, end: 20161012
  27. CODEINE PHOSPHATE [Concomitant]
     Active Substance: CODEINE PHOSPHATE
     Indication: PAIN IN EXTREMITY
     Route: 065
     Dates: start: 20151123, end: 20161010
  28. SKENAN [Concomitant]
     Active Substance: MORPHINE SULFATE
     Dosage: FOR FRACTURE(SPLIT) OF THE VERTEBRA D12
     Route: 065
     Dates: start: 20160812, end: 20161009
  29. PARACETAMOL [Concomitant]
     Active Substance: ACETAMINOPHEN
     Dosage: FOR THIGH PAIN
     Route: 065
     Dates: start: 20150313, end: 20150711

REACTIONS (1)
  - Invasive ductal breast carcinoma [Not Recovered/Not Resolved]

NARRATIVE: CASE EVENT DATE: 20170612
